FAERS Safety Report 8160111-4 (Version None)
Quarter: 2012Q1

REPORT INFORMATION
  Report Type: 
  Country: None (occurrence: None)
  Receive Date: 20120223
  Receipt Date: 20120216
  Transmission Date: 20120608
  Serious: Yes (Death, Life-Threatening)
  Sender: FDA-Public Use
  Company Number: JP-PFIZER INC-2011128709

PATIENT
  Age: 66 Year
  Sex: Female

DRUGS (11)
  1. PENTAMIDINE ISETHIONATE [Concomitant]
     Dosage: 150 MG
     Route: 042
     Dates: start: 20110601, end: 20110604
  2. VANCOMYCIN [Concomitant]
     Dosage: 1.5 G
     Route: 042
     Dates: start: 20110601, end: 20110605
  3. MICAFUNGIN SODIUM [Concomitant]
     Dosage: 75 MG, UNK
     Route: 042
     Dates: start: 20110502, end: 20110605
  4. HEPARIN SODIUM [Concomitant]
     Dosage: UNK
     Route: 051
     Dates: start: 20110504
  5. ADENOSINE TRIPHOSPHATE [Concomitant]
     Dosage: 500 MG, UNK
     Route: 042
     Dates: start: 20110604, end: 20110605
  6. ARGATROBAN [Suspect]
     Indication: HEPARIN-INDUCED THROMBOCYTOPENIA
     Dosage: 0.7MCG/KG/MIN
     Route: 042
     Dates: start: 20110531, end: 20110603
  7. SULFAMETHOXAZOLE [Concomitant]
     Dosage: 2400/480 MG
     Route: 048
     Dates: start: 20110514, end: 20110531
  8. FUTHAN [Concomitant]
     Indication: HEPARIN-INDUCED THROMBOCYTOPENIA
     Dosage: 100 MG
     Route: 042
     Dates: start: 20110527, end: 20110531
  9. WARFARIN [Concomitant]
     Dosage: 2 MG
     Route: 048
     Dates: start: 20110524, end: 20110527
  10. BACTRIM [Concomitant]
     Dosage: 2400/480 MG
     Route: 042
     Dates: start: 20110504, end: 20110513
  11. PREDNISOLONE [Concomitant]
     Dosage: 15 TO 30 MG
     Route: 048
     Dates: start: 20110514, end: 20110601

REACTIONS (2)
  - PULMONARY ALVEOLAR HAEMORRHAGE [None]
  - PNEUMONIA [None]
